FAERS Safety Report 6304561-7 (Version None)
Quarter: 2009Q3

REPORT INFORMATION
  Report Type: 
  Country: None (occurrence: None)
  Receive Date: 20090806
  Receipt Date: 20090728
  Transmission Date: 20100115
  Serious: Yes (Other)
  Sender: FDA-Public Use
  Company Number: 2009SP010911

PATIENT
  Age: 59 Year
  Sex: Female
  Weight: 58.5 kg

DRUGS (9)
  1. PEG-INTRON [Suspect]
     Indication: HEPATITIS C
     Dosage: 96 MCG; QW; SC 72 MCG; QW; SC
     Route: 058
     Dates: end: 20090518
  2. PEG-INTRON [Suspect]
     Indication: HEPATITIS C
     Dosage: 96 MCG; QW; SC 72 MCG; QW; SC
     Route: 058
     Dates: start: 20081120
  3. RIBAVIRIN [Suspect]
     Indication: HEPATITIS C
     Dosage: 800 MG; QD; PO 400 MG; QD; PO
     Route: 048
     Dates: start: 20081120, end: 20090521
  4. BLINDED SCH (S-P) (HCV PROTEASE INHIBITOR) [Suspect]
     Indication: HEPATITIS C
     Dosage: 800 MG; TID; PO 400 MG; TID; PO
     Route: 048
     Dates: start: 20081218, end: 20090521
  5. LISINOPRIL [Concomitant]
  6. NIFEDIPINE [Concomitant]
  7. LEVOTHROID [Concomitant]
  8. NABUMETONE [Concomitant]
  9. WELLBUTRIN [Concomitant]

REACTIONS (1)
  - OPTIC NEUROPATHY [None]
